FAERS Safety Report 12578971 (Version 3)
Quarter: 2016Q3

REPORT INFORMATION
  Report Type: Report from Study
  Country: CA (occurrence: CA)
  Receive Date: 20160721
  Receipt Date: 20160916
  Transmission Date: 20161109
  Serious: Yes (Hospitalization)
  Sender: FDA-Public Use
  Company Number: PHHY2016CA045639

PATIENT
  Age: 53 Year
  Sex: Male

DRUGS (3)
  1. GLEEVEC [Suspect]
     Active Substance: IMATINIB MESYLATE
     Indication: GASTROINTESTINAL STROMAL TUMOUR
     Dosage: 400 MG, QD
     Route: 048
     Dates: start: 20160304
  2. GLEEVEC [Suspect]
     Active Substance: IMATINIB MESYLATE
     Dosage: 400 MG, BID
     Route: 048
  3. GLEEVEC [Suspect]
     Active Substance: IMATINIB MESYLATE
     Dosage: 400 MG, QD
     Route: 048

REACTIONS (18)
  - Nephrolithiasis [Unknown]
  - Pyrexia [Unknown]
  - Headache [Recovered/Resolved]
  - Decreased appetite [Unknown]
  - Musculoskeletal stiffness [Unknown]
  - Oropharyngeal pain [Unknown]
  - Haemoglobin decreased [Unknown]
  - Asthenia [Unknown]
  - Feeling abnormal [Unknown]
  - Pain [Unknown]
  - Hepatomegaly [Unknown]
  - Dyspnoea [Unknown]
  - Migraine [Unknown]
  - Hypopnoea [Unknown]
  - Gastrointestinal disorder [Unknown]
  - Weight decreased [Unknown]
  - Hyperhidrosis [Unknown]
  - Viral test positive [Unknown]

NARRATIVE: CASE EVENT DATE: 20160504
